FAERS Safety Report 6028835-2 (Version None)
Quarter: 2009Q1

REPORT INFORMATION
  Report Type: 
  Country: None (occurrence: None)
  Receive Date: 20090105
  Receipt Date: 20090105
  Transmission Date: 20090719
  Serious: No
  Sender: FDA-Public Use
  Company Number: None

PATIENT
  Age: 52 Year
  Sex: Male
  Weight: 99.34 kg

DRUGS (1)
  1. IMIQUIMOD [Suspect]
     Indication: ANOGENITAL WARTS
     Dosage: APPLY AT BEDTIME TOP
     Route: 061
     Dates: start: 20081125, end: 20081222

REACTIONS (1)
  - RASH [None]
